FAERS Safety Report 16522395 (Version 3)
Quarter: 2020Q2

REPORT INFORMATION
  Report Type: Spontaneous
  Country: US (occurrence: US)
  Receive Date: 20190703
  Receipt Date: 20200608
  Transmission Date: 20200713
  Serious: Yes (Other)
  Sender: FDA-Public Use
  Company Number: US-PFIZER INC-2019281659

PATIENT
  Age: 78 Year
  Sex: Female
  Weight: 70 kg

DRUGS (7)
  1. IRON [Concomitant]
     Active Substance: IRON
     Indication: WHITE BLOOD CELL COUNT ABNORMAL
  2. IBRANCE [Suspect]
     Active Substance: PALBOCICLIB
     Dosage: 100 MG
     Dates: start: 2017
  3. VITAMIN C [Concomitant]
     Active Substance: ASCORBIC ACID
     Indication: ASTHENIA
     Dosage: UNK
  4. VITAMIN D 50 [Concomitant]
     Indication: ASTHENIA
     Dosage: UNK [VITAMIN D 50]
  5. IBRANCE [Suspect]
     Active Substance: PALBOCICLIB
     Indication: BREAST CANCER FEMALE
     Dosage: 100 MG, 1X/DAY (FOR 21 DAYS)
     Route: 048
  6. VITAMIN B12/ VITAMIN B6/ FOLIC ACID [Concomitant]
     Indication: ASTHENIA
     Dosage: 1 DF, DAILY (1 SUBLINGUAL TABLET TAKEN DAILY)
     Route: 060
  7. IRON [Concomitant]
     Active Substance: IRON
     Indication: RED BLOOD CELL COUNT ABNORMAL
     Dosage: UNK, 2X/WEEK (TAKEN TWICE WEEKLY: TUESDAYS AND SATURDAYS)

REACTIONS (4)
  - Weight increased [Unknown]
  - Wound haemorrhage [Recovering/Resolving]
  - Asthenia [Recovering/Resolving]
  - Nasopharyngitis [Not Recovered/Not Resolved]

NARRATIVE: CASE EVENT DATE: 20190623
